FAERS Safety Report 15814802 (Version 1)
Quarter: 2019Q1

REPORT INFORMATION
  Report Type: Spontaneous
  Country: BE (occurrence: BE)
  Receive Date: 20190111
  Receipt Date: 20190111
  Transmission Date: 20190417
  Serious: Yes (Other)
  Sender: FDA-Public Use
  Company Number: BE-RICON PHARMA, LLC-RIC201901-000005

PATIENT
  Sex: Male
  Weight: 3.42 kg

DRUGS (5)
  1. ROPIVACAIN [Concomitant]
     Active Substance: ROPIVACAINE
  2. LIDOCAINE. [Suspect]
     Active Substance: LIDOCAINE
     Route: 064
  3. EPINEPHRINE. [Concomitant]
     Active Substance: EPINEPHRINE
  4. SODIUM CHLORIDE. [Concomitant]
     Active Substance: SODIUM CHLORIDE
  5. SUFENTANYL [Concomitant]
     Active Substance: SUFENTANIL

REACTIONS (8)
  - Apnoea [Recovered/Resolved]
  - Mydriasis [Recovered/Resolved]
  - Toxicity to various agents [Recovered/Resolved]
  - Hypotonia [Recovered/Resolved]
  - Muscle contractions involuntary [Recovered/Resolved]
  - Tonic convulsion [Recovered/Resolved]
  - Pallor [Recovered/Resolved]
  - Foetal exposure during pregnancy [Unknown]
